FAERS Safety Report 8027998-7 (Version None)
Quarter: 2012Q1

REPORT INFORMATION
  Report Type: 
  Country: None (occurrence: None)
  Receive Date: 20120106
  Receipt Date: 20110120
  Transmission Date: 20120608
  Serious: No
  Sender: FDA-Public Use
  Company Number: US-MYLANLABS-2011S1001634

PATIENT
  Age: 54 Year
  Sex: Male
  Weight: 113.4 kg

DRUGS (7)
  1. MECLIZINE [Concomitant]
     Indication: DIZZINESS
     Dosage: 25MG TID PRN
  2. PHENYTOIN SODIUM CAP [Suspect]
     Indication: CONVULSION
     Route: 048
     Dates: start: 20080101
  3. HYDROCODONE [Concomitant]
     Indication: ARTHRALGIA
     Dosage: 10MG/660MG X 5 PER DAY, PRN
     Dates: start: 20080101
  4. CLONAZEPAM [Concomitant]
     Indication: ANXIETY
  5. IBUPROFEN [Concomitant]
     Indication: ARTHRALGIA
  6. LEVETIRACETAM [Concomitant]
     Indication: DIZZINESS
     Dates: start: 20100101
  7. TRAZODONE HCL [Concomitant]
     Indication: INSOMNIA
     Dates: start: 20110101

REACTIONS (1)
  - ANTICONVULSANT DRUG LEVEL BELOW THERAPEUTIC [None]
